FAERS Safety Report 22294013 (Version 3)
Quarter: 2023Q2

REPORT INFORMATION
  Report Type: Spontaneous
  Country: CA (occurrence: CA)
  Receive Date: 20230508
  Receipt Date: 20230629
  Transmission Date: 20230721
  Serious: Yes (Other)
  Sender: FDA-Public Use
  Company Number: CA-PFIZER INC-202200824481

PATIENT
  Age: 22 Year
  Sex: Female
  Weight: 94 kg

DRUGS (15)
  1. ABRILADA [Suspect]
     Active Substance: ADALIMUMAB-AFZB
     Indication: Crohn^s disease
     Dosage: 40 MG, WEEK 0: 160MG, WEEK 2: 80MG, THEN EVERY OTHER WEEK STARTING WEEK 4
     Route: 058
     Dates: start: 20220519, end: 2022
  2. ABRILADA [Suspect]
     Active Substance: ADALIMUMAB-AFZB
     Dosage: 80 MG,WEEK 0: 160MG, WEEK 2: 80MG, THEN EVERY OTHER WEEK STARTING WEEK 4
     Route: 058
     Dates: start: 20220616
  3. ABRILADA [Suspect]
     Active Substance: ADALIMUMAB-AFZB
     Dosage: 80 MG, AS PREFILLED PEN
     Route: 058
     Dates: start: 2022, end: 2022
  4. ABRILADA [Suspect]
     Active Substance: ADALIMUMAB-AFZB
     Dosage: 40 MG, WEEKLY
     Route: 058
     Dates: start: 2022
  5. ABRILADA [Suspect]
     Active Substance: ADALIMUMAB-AFZB
     Dosage: 40 MG, WEEKLY
     Route: 058
     Dates: start: 20230428
  6. CITALOPRAM [Concomitant]
     Active Substance: CITALOPRAM HYDROBROMIDE
     Dosage: 50 MG, 1X/DAY
     Route: 065
  7. CITALOPRAM [Concomitant]
     Active Substance: CITALOPRAM HYDROBROMIDE
     Dosage: 30 MG, DAILY
  8. CALCIUM [Concomitant]
     Active Substance: CALCIUM
     Dosage: UNK
  9. FOLIC ACID [Concomitant]
     Active Substance: FOLIC ACID
     Dosage: 5 MG, WEEKLY
     Route: 065
  10. METHOTREXATE [Concomitant]
     Active Substance: METHOTREXATE
     Dosage: 12.5 MG, WEEKLY
     Route: 048
     Dates: start: 2022, end: 202211
  11. PREDNISONE [Concomitant]
     Active Substance: PREDNISONE
     Dosage: 40 MG, 1X/DAY
     Route: 065
     Dates: end: 202206
  12. RABEPRAZOLE [Concomitant]
     Active Substance: RABEPRAZOLE
     Dosage: 20 MG, 1X/DAY
     Route: 065
     Dates: end: 202211
  13. VENLAFAXINE [Concomitant]
     Active Substance: VENLAFAXINE HYDROCHLORIDE
     Dosage: 1 DF, 1X/DAY, 37.5MG
     Route: 065
  14. CHOLECALCIFEROL [Concomitant]
     Active Substance: CHOLECALCIFEROL
     Dosage: 2500 IU, 1X/DAY
     Route: 065
  15. VIBERZI [Concomitant]
     Active Substance: ELUXADOLINE
     Dosage: UNK
     Dates: start: 202211

REACTIONS (32)
  - Oral pain [Not Recovered/Not Resolved]
  - Hepatic adenoma [Unknown]
  - Therapeutic response shortened [Not Recovered/Not Resolved]
  - Fatigue [Not Recovered/Not Resolved]
  - Insomnia [Not Recovered/Not Resolved]
  - Snoring [Not Recovered/Not Resolved]
  - Fluid retention [Not Recovered/Not Resolved]
  - Neck mass [Not Recovered/Not Resolved]
  - Emotional disorder [Unknown]
  - Malaise [Unknown]
  - Arthralgia [Not Recovered/Not Resolved]
  - Inflammation [Recovered/Resolved]
  - Libido decreased [Not Recovered/Not Resolved]
  - Anorgasmia [Not Recovered/Not Resolved]
  - Condition aggravated [Unknown]
  - Off label use [Unknown]
  - Off label use [Unknown]
  - Irritable bowel syndrome [Unknown]
  - Blood alkaline phosphatase increased [Unknown]
  - Diarrhoea [Not Recovered/Not Resolved]
  - Nausea [Recovering/Resolving]
  - Vomiting [Unknown]
  - Weight decreased [Unknown]
  - Rectal discharge [Unknown]
  - Proctalgia [Unknown]
  - Abdominal pain [Not Recovered/Not Resolved]
  - Injection site pain [Recovered/Resolved]
  - Injection site swelling [Recovered/Resolved]
  - Injection site erythema [Recovered/Resolved]
  - Gastrooesophageal reflux disease [Unknown]
  - Gastrointestinal motility disorder [Unknown]
  - Focal nodular hyperplasia [Unknown]

NARRATIVE: CASE EVENT DATE: 20220101
